FAERS Safety Report 16820469 (Version 2)
Quarter: 2019Q4

REPORT INFORMATION
  Report Type: Report from Study
  Country: US (occurrence: US)
  Receive Date: 20190918
  Receipt Date: 20191009
  Transmission Date: 20200122
  Serious: Yes (Hospitalization, Other)
  Sender: FDA-Public Use
  Company Number: US-BEH-2019102475

PATIENT
  Age: 58 Year
  Sex: Male
  Weight: 66.67 kg

DRUGS (1)
  1. SET, I.V. FLUID TRANSFER/ NEEDLE, HYPODERMIC, SINGLE LUMEN [Suspect]
     Active Substance: .ALPHA.1-PROTEINASE INHIBITOR HUMAN
     Indication: ALPHA-1 ANTI-TRYPSIN DEFICIENCY
     Dosage: UNK UNK, QW
     Route: 042
     Dates: start: 200808

REACTIONS (6)
  - Pneumonia [Unknown]
  - Adverse reaction [Unknown]
  - Renal failure [Recovering/Resolving]
  - Pneumonia fungal [Unknown]
  - Rhinovirus infection [Unknown]
  - Lung transplant [Unknown]

NARRATIVE: CASE EVENT DATE: 20190420
